FAERS Safety Report 8603464-2 (Version None)
Quarter: 2012Q3

REPORT INFORMATION
  Report Type: 
  Country: None (occurrence: None)
  Receive Date: 20120806
  Receipt Date: 20120727
  Transmission Date: 20120928
  Serious: Yes (Other)
  Sender: FDA-Public Use
  Company Number: AUR-APL-2012-03276

PATIENT
  Age: 37 Year
  Sex: Female

DRUGS (6)
  1. VENLAFAXINE HCL [Suspect]
     Indication: DEPRESSED MOOD
     Dosage: DAILY (45 MG), ORAL
     Route: 048
  2. CLOZARIL [Suspect]
     Indication: SCHIZOPHRENIA
     Dosage: ORAL
     Dates: start: 20111118
  3. MIRTAZAPINE [Concomitant]
  4. DIAZEPAM [Concomitant]
  5. RISPERIDONE [Suspect]
     Indication: SCHIZOPHRENIA
     Dosage: DAILY (2 MG), ORAL
     Route: 048
  6. HYOSCINE HYDROBROMIDE (HYOSCINE HYDROBROMIDE) [Suspect]
     Indication: PRODUCT USED FOR UNKNOWN INDICATION
     Dosage: DAILY (600 MCG), ORAL
     Route: 048

REACTIONS (3)
  - ANXIETY [None]
  - TACHYCARDIA [None]
  - DRUG EFFECT DECREASED [None]
